FAERS Safety Report 13704893 (Version 2)
Quarter: 2017Q3

REPORT INFORMATION
  Report Type: Spontaneous
  Country: ES (occurrence: ES)
  Receive Date: 20170630
  Receipt Date: 20170712
  Transmission Date: 20171127
  Serious: Yes (Hospitalization)
  Sender: FDA-Public Use
  Company Number: ALCN2017ES004142

PATIENT
  Age: 71 Year
  Sex: Male

DRUGS (2)
  1. OLMESARTAN [Concomitant]
     Active Substance: OLMESARTAN
     Indication: HYPERTENSION
     Dosage: (20 MG AT BREAKFAST AND 10 MG AT SUPPER)
     Route: 048
  2. SIMBRINZA [Suspect]
     Active Substance: BRIMONIDINE TARTRATE\BRINZOLAMIDE
     Indication: GLAUCOMA
     Dosage: UNK
     Route: 047
     Dates: start: 201509, end: 20170625

REACTIONS (6)
  - Hypoosmolar state [Recovering/Resolving]
  - Asthenia [Unknown]
  - Dyspraxia [Unknown]
  - Hypovolaemia [Recovering/Resolving]
  - Hyponatraemia [Recovering/Resolving]
  - Bradyphrenia [Unknown]

NARRATIVE: CASE EVENT DATE: 20170625
